FAERS Safety Report 17841872 (Version 1)
Quarter: 2020Q2

REPORT INFORMATION
  Report Type: Report from Study
  Country: CO (occurrence: CO)
  Receive Date: 20200529
  Receipt Date: 20200529
  Transmission Date: 20200714
  Serious: Yes (Hospitalization)
  Sender: FDA-Public Use
  Company Number: NVSC2018CO004227

PATIENT

DRUGS (1)
  1. EXJADE [Suspect]
     Active Substance: DEFERASIROX
     Indication: IRON METABOLISM DISORDER
     Dosage: 2 DF, QD (2 TABLETS OF 500 MG)
     Route: 065

REACTIONS (3)
  - Hydronephrosis [Unknown]
  - Investigation abnormal [Unknown]
  - Blood cholesterol increased [Unknown]
